FAERS Safety Report 21071316 (Version 1)
Quarter: 2022Q3

REPORT INFORMATION
  Report Type: Spontaneous
  Country: GB (occurrence: GB)
  Receive Date: 20220712
  Receipt Date: 20220712
  Transmission Date: 20221026
  Serious: Yes (Other)
  Sender: FDA-Public Use
  Company Number: None

PATIENT
  Age: 80 Year
  Sex: Female
  Weight: 71 kg

DRUGS (10)
  1. AMOXICILLIN\CLAVULANATE POTASSIUM [Suspect]
     Active Substance: AMOXICILLIN\CLAVULANATE POTASSIUM
     Indication: Ill-defined disorder
     Dosage: UNK (TAKE ONE TABLET THREE TIMES A DAY FOR SEVEN DAYS)
     Route: 065
     Dates: start: 20220704
  2. AMOXICILLIN\CLAVULANATE POTASSIUM [Suspect]
     Active Substance: AMOXICILLIN\CLAVULANATE POTASSIUM
     Dosage: UNK
     Route: 065
     Dates: start: 20220707
  3. APIXABAN [Concomitant]
     Active Substance: APIXABAN
     Indication: Ill-defined disorder
     Dosage: UNK (TAKE ONE TWICE DAILY)
     Route: 065
     Dates: start: 20210224
  4. BISOPROLOL [Concomitant]
     Active Substance: BISOPROLOL
     Indication: Ill-defined disorder
     Dosage: UNK (TAKE ONE TABLET EACH MORNING)
     Route: 065
     Dates: start: 20210224
  5. CHLORPHENIRAMINE MALEATE [Concomitant]
     Active Substance: CHLORPHENIRAMINE MALEATE
     Indication: Ill-defined disorder
     Dosage: UNK  (TAKE ONE TABLET FOUR TIMES A DAY)
     Route: 065
     Dates: start: 20220706
  6. ISOPROPYL MYRISTATE\MINERAL OIL [Concomitant]
     Active Substance: ISOPROPYL MYRISTATE\MINERAL OIL
     Indication: Ill-defined disorder
     Dosage: UNK (APPLY TWICE DAILY)
     Route: 065
     Dates: start: 20210826
  7. DOXYCYCLINE [Concomitant]
     Active Substance: DOXYCYCLINE
     Indication: Ill-defined disorder
     Dosage: UNK (TWO NOW THEN ONE DAILY)
     Route: 065
     Dates: start: 20220706
  8. FUROSEMIDE [Concomitant]
     Active Substance: FUROSEMIDE
     Indication: Ill-defined disorder
     Dosage: UNK (TAKE ONE TABLET EACH MORNING)
     Route: 065
     Dates: start: 20220627
  9. RAMIPRIL [Concomitant]
     Active Substance: RAMIPRIL
     Indication: Ill-defined disorder
     Dosage: UNK (ONE TO BE TAKEN DAILY)
     Route: 065
     Dates: start: 20210224
  10. SIMVASTATIN [Concomitant]
     Active Substance: SIMVASTATIN
     Indication: Ill-defined disorder
     Dosage: UNK- (ONE TO BE TAKEN DAILY)
     Route: 065
     Dates: start: 20210224

REACTIONS (1)
  - Adverse drug reaction [Recovering/Resolving]

NARRATIVE: CASE EVENT DATE: 20220707
